FAERS Safety Report 13839566 (Version 1)
Quarter: 2017Q3

REPORT INFORMATION
  Report Type: Spontaneous
  Country: US (occurrence: US)
  Receive Date: 20170807
  Receipt Date: 20170807
  Transmission Date: 20171127
  Serious: No
  Sender: FDA-Public Use
  Company Number: US-009507513-1708USA002740

PATIENT
  Age: 62 Year

DRUGS (2)
  1. CUBICIN [Suspect]
     Active Substance: DAPTOMYCIN
     Indication: DIABETIC FOOT INFECTION
     Dosage: 8 MG/KG, UNK
  2. CUBICIN [Suspect]
     Active Substance: DAPTOMYCIN
     Indication: WOUND INFECTION STAPHYLOCOCCAL

REACTIONS (2)
  - Incorrect dosage administered [Unknown]
  - Product use in unapproved indication [Unknown]
